FAERS Safety Report 12167161 (Version 1)
Quarter: 2016Q1

REPORT INFORMATION
  Report Type: Spontaneous
  Country: US (occurrence: None)
  Receive Date: 20160309
  Receipt Date: 20160309
  Transmission Date: 20160526
  Serious: Yes (Death)
  Sender: FDA-Public Use
  Company Number: None

PATIENT
  Age: 90 Year
  Sex: Male

DRUGS (18)
  1. AMIODARONE [Concomitant]
     Active Substance: AMIODARONE
  2. TAMSULOSIN [Concomitant]
     Active Substance: TAMSULOSIN
  3. PROBIOTIC [Concomitant]
     Active Substance: PROBIOTICS NOS
  4. LISINOPRIL. [Concomitant]
     Active Substance: LISINOPRIL
  5. PREDNISOLONE. [Concomitant]
     Active Substance: PREDNISOLONE
  6. PROLENSA [Concomitant]
     Active Substance: BROMFENAC SODIUM
  7. SSD [Concomitant]
     Active Substance: SILVER SULFADIAZINE
  8. OFLOXACIN. [Concomitant]
     Active Substance: OFLOXACIN
  9. PROVENTIL [Concomitant]
     Active Substance: ALBUTEROL
  10. CARVEDILOL. [Concomitant]
     Active Substance: CARVEDILOL
  11. TOBRAMYCIN 300 MG PER 5 ML NEB SOLN AKORN [Suspect]
     Active Substance: TOBRAMYCIN
     Indication: PNEUMONIA PSEUDOMONAL
     Route: 055
     Dates: start: 20160205, end: 20160222
  12. XARELTO [Concomitant]
     Active Substance: RIVAROXABAN
  13. MONTELUKAST [Concomitant]
     Active Substance: MONTELUKAST SODIUM
  14. ANDROGEL [Concomitant]
     Active Substance: TESTOSTERONE
  15. AMOX/K CLAV [Concomitant]
     Active Substance: AMOXICILLIN\CLAVULANATE POTASSIUM
  16. ATROVENT [Concomitant]
     Active Substance: IPRATROPIUM BROMIDE
  17. METRONIDAZOLE. [Concomitant]
     Active Substance: METRONIDAZOLE
  18. CEFDINIR. [Concomitant]
     Active Substance: CEFDINIR

REACTIONS (1)
  - Death [None]

NARRATIVE: CASE EVENT DATE: 20160222
